FAERS Safety Report 13211888 (Version 1)
Quarter: 2017Q1

REPORT INFORMATION
  Report Type: Spontaneous
  Country: CN (occurrence: CN)
  Receive Date: 20170210
  Receipt Date: 20170210
  Transmission Date: 20170428
  Serious: Yes (Hospitalization)
  Sender: FDA-Public Use
  Company Number: CN-BAYER-2017-026357

PATIENT
  Age: 74 Year
  Sex: Female

DRUGS (3)
  1. GLUCOBAY [Suspect]
     Active Substance: ACARBOSE
     Indication: HYPERGLYCAEMIA
     Dosage: 50 MG (1 TABLET) BEFORE DINNER
     Dates: start: 20161030
  2. DIAMICRON [Suspect]
     Active Substance: GLICLAZIDE
     Indication: HYPERGLYCAEMIA
     Dosage: 30 MG, QD
     Route: 048
     Dates: start: 20131210, end: 20161024
  3. GLUCOBAY [Suspect]
     Active Substance: ACARBOSE
     Indication: HYPERGLYCAEMIA
     Dosage: 50 MG, TID
     Route: 048
     Dates: start: 20131210, end: 20161024

REACTIONS (1)
  - Diabetic ketoacidosis [Recovering/Resolving]

NARRATIVE: CASE EVENT DATE: 20161027
